FAERS Safety Report 18931138 (Version 3)
Quarter: 2021Q2

REPORT INFORMATION
  Report Type: Spontaneous
  Country: AU (occurrence: AU)
  Receive Date: 20210223
  Receipt Date: 20210421
  Transmission Date: 20210717
  Serious: Yes (Hospitalization, Other)
  Sender: FDA-Public Use
  Company Number: AU-GLAXOSMITHKLINE-AUCH2021008535

PATIENT
  Age: 77 Year
  Sex: Female

DRUGS (2)
  1. ADVIL [Suspect]
     Active Substance: IBUPROFEN
     Indication: ARTHRALGIA
     Dosage: 200 MG, BID
     Route: 048
     Dates: start: 20201221, end: 20201221
  2. ADVIL [Suspect]
     Active Substance: IBUPROFEN
     Indication: HEADACHE

REACTIONS (11)
  - Swollen tongue [Recovered/Resolved]
  - Vomiting [Unknown]
  - Dyspnoea [Unknown]
  - Anaphylactic reaction [Unknown]
  - Lip swelling [Unknown]
  - Erythema [Recovered/Resolved]
  - Throat tightness [Unknown]
  - Hyperhidrosis [Unknown]
  - Abdominal discomfort [Unknown]
  - Pruritus [Recovered/Resolved]
  - Wheezing [Recovered/Resolved]

NARRATIVE: CASE EVENT DATE: 20201221
